FAERS Safety Report 6238096-7 (Version None)
Quarter: 2009Q2

REPORT INFORMATION
  Report Type: 
  Country: None (occurrence: None)
  Receive Date: 20090617
  Receipt Date: 20090617
  Transmission Date: 20091009
  Serious: Yes (Death, Hospitalization)
  Sender: FDA-Public Use
  Company Number: None

PATIENT
  Age: 27 Year
  Sex: Female
  Weight: 43 kg

DRUGS (3)
  1. TRUVADA [Suspect]
     Indication: HIV INFECTION
     Dosage: 200MG/300MG ONCE DAILY ORAL
     Route: 048
     Dates: start: 20070327, end: 20090411
  2. LOPINAVIR/RITONVIR (ALUVIA) [Suspect]
     Indication: HIV INFECTION
     Dosage: 400MG/100MG TWICE A DAY ORAL
     Route: 048
     Dates: start: 20070302, end: 20090411
  3. DEPD PROVERA [Concomitant]

REACTIONS (6)
  - CHILLS [None]
  - GANGRENE [None]
  - LYMPHADENOPATHY [None]
  - MALAISE [None]
  - PERIPHERAL COLDNESS [None]
  - SEPSIS [None]
